FAERS Safety Report 17066023 (Version 1)
Quarter: 2019Q4

REPORT INFORMATION
  Report Type: Spontaneous
  Country: US (occurrence: US)
  Receive Date: 20191122
  Receipt Date: 20191122
  Transmission Date: 20200122
  Serious: Yes (Other)
  Sender: FDA-Public Use
  Company Number: US-BAUSCH-BL-2019-061966

PATIENT
  Age: 1 Year
  Sex: Male

DRUGS (5)
  1. FLOLAN [Concomitant]
     Active Substance: EPOPROSTENOL SODIUM
     Route: 042
  2. NITRIC OXIDE. [Concomitant]
     Active Substance: NITRIC OXIDE
     Indication: PULMONARY HYPERTENSION
     Dosage: 2-40 PPM
  3. ISOPROTERENOL. [Suspect]
     Active Substance: ISOPROTERENOL
     Indication: PULMONARY HYPERTENSION
     Dosage: 0.1 MICROG/KG/MIN
     Route: 065
  4. NITRIC OXIDE. [Concomitant]
     Active Substance: NITRIC OXIDE
     Dosage: 40 PPM
  5. FLOLAN [Concomitant]
     Active Substance: EPOPROSTENOL SODIUM
     Indication: PULMONARY HYPERTENSION
     Dosage: 10 TO 20 NG/KG/MIN
     Route: 042

REACTIONS (1)
  - Drug ineffective [Unknown]
